FAERS Safety Report 25069441 (Version 2)
Quarter: 2025Q1

REPORT INFORMATION
  Report Type: Spontaneous
  Country: US (occurrence: US)
  Receive Date: 20250312
  Receipt Date: 20250327
  Transmission Date: 20250408
  Serious: Yes (Hospitalization, Other)
  Sender: JEROME STEVENS
  Company Number: US-Jerome Stevens Pharmaceuticals, Inc.-2172725

PATIENT
  Age: 74 Year
  Sex: Male

DRUGS (5)
  1. DIGOXIN [Suspect]
     Active Substance: DIGOXIN
  2. CARVEDILOL [Suspect]
     Active Substance: CARVEDILOL
  3. FUROSEMIDE [Concomitant]
     Active Substance: FUROSEMIDE
  4. SPIRONOLACTONE [Suspect]
     Active Substance: SPIRONOLACTONE
  5. VALSARTAN [Suspect]
     Active Substance: VALSARTAN

REACTIONS (2)
  - BRASH syndrome [Unknown]
  - Toxicity to various agents [Unknown]
